FAERS Safety Report 7898902-7 (Version None)
Quarter: 2011Q4

REPORT INFORMATION
  Report Type: 
  Country: None (occurrence: None)
  Receive Date: 20111107
  Receipt Date: 20111102
  Transmission Date: 20120403
  Serious: Yes (Life-Threatening)
  Sender: FDA-Public Use
  Company Number: FR-ASTRAZENECA-2011SE66331

PATIENT
  Age: 30834 Day
  Sex: Female

DRUGS (11)
  1. DIPRIVAN [Suspect]
     Indication: ANAESTHESIA
     Route: 042
     Dates: start: 20111006, end: 20111006
  2. VALSARTAN  AND HYDROCHLOROTHIAZIDE [Concomitant]
  3. EUPRESSYL [Concomitant]
  4. ASPIRIN [Concomitant]
     Dates: end: 20110920
  5. VERATRAN [Concomitant]
  6. CELOCURINE [Suspect]
     Indication: ANAESTHESIA
     Route: 042
     Dates: start: 20111007, end: 20111007
  7. DIPRIVAN [Suspect]
     Route: 042
     Dates: start: 20111007, end: 20111007
  8. TRACRIUM [Concomitant]
     Dates: start: 20111006, end: 20111006
  9. LOPRESSOR [Concomitant]
  10. ATARAX [Concomitant]
     Dates: start: 20111005
  11. CEFAZOLIN [Concomitant]
     Route: 042
     Dates: start: 20111006

REACTIONS (1)
  - ANAPHYLACTIC SHOCK [None]
